FAERS Safety Report 5131242-8 (Version None)
Quarter: 2006Q4

REPORT INFORMATION
  Report Type: 
  Country: None (occurrence: None)
  Receive Date: 20061017
  Receipt Date: 20061017
  Transmission Date: 20070319
  Serious: Yes (Life-Threatening, Hospitalization)
  Sender: FDA-Public Use
  Company Number: None

PATIENT
  Age: 69 Year
  Sex: Male
  Weight: 107.0489 kg

DRUGS (2)
  1. IMMUNE GLOBULIN INTRAVENOUS (HUMAN) [Suspect]
     Indication: AUTOIMMUNE THROMBOCYTOPENIA
     Dosage: 42GM
     Dates: start: 20061002, end: 20061006
  2. IMMUNE GLOBULIN INTRAVENOUS (HUMAN) [Suspect]
     Indication: PREOPERATIVE CARE
     Dosage: 42GM
     Dates: start: 20061002, end: 20061006

REACTIONS (1)
  - RENAL FAILURE ACUTE [None]
